FAERS Safety Report 14505311 (Version 1)
Quarter: 2018Q1

REPORT INFORMATION
  Report Type: Spontaneous
  Country: GB (occurrence: GB)
  Receive Date: 20180208
  Receipt Date: 20180208
  Transmission Date: 20180509
  Serious: Yes (Other)
  Sender: FDA-Public Use
  Company Number: GB-AUROBINDO-AUR-APL-2018-005082

PATIENT
  Sex: Male

DRUGS (2)
  1. ATORVASTATIN [Concomitant]
     Active Substance: ATORVASTATIN
     Indication: PRODUCT USED FOR UNKNOWN INDICATION
     Dosage: UNK
     Route: 065
  2. BISOPROLOL [Suspect]
     Active Substance: BISOPROLOL
     Indication: COMPLICATION ASSOCIATED WITH DEVICE
     Dosage: 2.5 MG, DAILY
     Route: 048

REACTIONS (5)
  - Deafness [Unknown]
  - Hypoaesthesia [Unknown]
  - Tremor [Unknown]
  - Paraesthesia [Unknown]
  - Gait inability [Unknown]
